FAERS Safety Report 4495485-9 (Version None)
Quarter: 2004Q4

REPORT INFORMATION
  Report Type: 
  Country: None (occurrence: None)
  Receive Date: 20041108
  Receipt Date: 20041101
  Transmission Date: 20050328
  Serious: Yes (Hospitalization)
  Sender: FDA-Public Use
  Company Number: US-JNJFOC-20040903036

PATIENT
  Age: 63 Year
  Sex: Female
  Weight: 92.53 kg

DRUGS (12)
  1. TOPAMAX [Suspect]
     Route: 049
  2. DILANTIN [Suspect]
  3. SINGULAIR [Concomitant]
     Indication: ASTHMA
  4. POTASSIUM [Concomitant]
  5. PROCARDIA XL [Concomitant]
     Indication: HYPERTENSION
  6. CALCIUM [Concomitant]
  7. LORTAB [Concomitant]
  8. LORTAB [Concomitant]
     Indication: PAIN
  9. FOSAMAX [Concomitant]
  10. PROZAC [Concomitant]
  11. ZYRTEC [Concomitant]
  12. OXYBUTYNIN HYDROCHLORIDE [Concomitant]

REACTIONS (7)
  - ASTHENIA [None]
  - BLOOD MAGNESIUM DECREASED [None]
  - BLOOD POTASSIUM DECREASED [None]
  - CONVULSION [None]
  - EAR INFECTION [None]
  - FALL [None]
  - VITAMIN B12 DECREASED [None]
